FAERS Safety Report 6226141-4 (Version None)
Quarter: 2009Q2

REPORT INFORMATION
  Report Type: 
  Country: None (occurrence: None)
  Receive Date: 20090610
  Receipt Date: 20090526
  Transmission Date: 20091009
  Serious: Yes (Hospitalization, Other)
  Sender: FDA-Public Use
  Company Number: 2009000457

PATIENT
  Age: 82 Year
  Sex: Male

DRUGS (10)
  1. ERLOTINIB (ERLOTINIB) (TABLET) (ERLOTINIB) [Suspect]
     Indication: LUNG NEOPLASM MALIGNANT
     Dosage: ORAL
     Route: 048
  2. TRIATEC 5 (RAMIPRIL) [Concomitant]
  3. ATORVASTATIN CALCIUM [Concomitant]
  4. TRAMADOL HCL [Concomitant]
  5. ACETAMINOPHEN [Concomitant]
  6. FORLAX (MACROGOL) [Concomitant]
  7. SPIRIVA [Concomitant]
  8. FORADIL [Concomitant]
  9. INNOFEP (HEPARIN-FRACTION, SODIUM SALT) [Concomitant]
  10. TOPALGIC (SUPROFEN) [Concomitant]

REACTIONS (2)
  - CONFUSIONAL STATE [None]
  - GENERAL PHYSICAL HEALTH DETERIORATION [None]
